FAERS Safety Report 4663280-3 (Version None)
Quarter: 2005Q2

REPORT INFORMATION
  Report Type: 
  Country: None (occurrence: None)
  Receive Date: 20050511
  Receipt Date: 20050307
  Transmission Date: 20051028
  Serious: Yes (Other)
  Sender: FDA-Public Use
  Company Number: 380534

PATIENT
  Age: 36 Year
  Sex: Female

DRUGS (3)
  1. PEGASYS [Suspect]
     Indication: HEPATITIS C
     Dosage: 1 PER WEEK, OTHER
     Route: 050
     Dates: start: 20040920, end: 20050221
  2. COPEGUS [Suspect]
     Indication: HEPATITIS C
     Dosage: 2 DOSE FORM 2 PER DAY, ORAL
     Route: 048
     Dates: start: 20040920, end: 20050221
  3. PREDNISONE [Concomitant]

REACTIONS (17)
  - ALOPECIA [None]
  - AMNESIA [None]
  - ANOREXIA [None]
  - CONFUSIONAL STATE [None]
  - DIARRHOEA [None]
  - DRY MOUTH [None]
  - DYSURIA [None]
  - FATIGUE [None]
  - HAEMATEMESIS [None]
  - HEADACHE [None]
  - HYPERSOMNIA [None]
  - MUSCLE SPASMS [None]
  - NAUSEA [None]
  - POLYDIPSIA [None]
  - SLEEP WALKING [None]
  - VOMITING [None]
  - WEIGHT INCREASED [None]
